FAERS Safety Report 19373523 (Version 2)
Quarter: 2021Q2

REPORT INFORMATION
  Report Type: Spontaneous
  Country: CA (occurrence: CA)
  Receive Date: 20210603
  Receipt Date: 20210622
  Transmission Date: 20210717
  Serious: Yes (Hospitalization, Disabling, Other)
  Sender: FDA-Public Use
  Company Number: NVSC2021CA118971

PATIENT
  Age: 68 Year
  Sex: Female
  Weight: 47 kg

DRUGS (14)
  1. CEFTRIAXONE SODIUM FOR INJECTION BP [Suspect]
     Active Substance: CEFTRIAXONE SODIUM
     Dosage: 1 G, QD
     Route: 042
  2. LOPERAMIDE [Concomitant]
     Active Substance: LOPERAMIDE
     Indication: PRODUCT USED FOR UNKNOWN INDICATION
     Dosage: UNK
     Route: 065
  3. CEFTRIAXONE SODIUM FOR INJECTION BP [Suspect]
     Active Substance: CEFTRIAXONE SODIUM
     Indication: PNEUMONIA ASPIRATION
     Dosage: UNK
     Route: 030
  4. PIPERACILLIN AND TAZOBACTAM [Suspect]
     Active Substance: PIPERACILLIN SODIUM\TAZOBACTAM SODIUM
     Dosage: 4.5 G, QID
     Route: 042
  5. PIPERACILLIN AND TAZOBACTAM [Suspect]
     Active Substance: PIPERACILLIN SODIUM\TAZOBACTAM SODIUM
     Dosage: 4.5 G, QID
     Route: 042
  6. HYDROMORPHONE [Concomitant]
     Active Substance: HYDROMORPHONE
     Indication: PRODUCT USED FOR UNKNOWN INDICATION
     Dosage: UNK
     Route: 065
  7. SANDOZ AMOXI?CLAV [Suspect]
     Active Substance: AMOXICILLIN\CLAVULANIC ACID
     Indication: PNEUMONIA ASPIRATION
     Dosage: UNK
     Route: 065
  8. CEFTRIAXONE SODIUM FOR INJECTION BP [Suspect]
     Active Substance: CEFTRIAXONE SODIUM
     Dosage: 1 G, QD
     Route: 042
  9. CEFTRIAXONE SODIUM FOR INJECTION BP [Suspect]
     Active Substance: CEFTRIAXONE SODIUM
     Dosage: UNK
     Route: 030
  10. PIPERACILLIN AND TAZOBACTAM [Suspect]
     Active Substance: PIPERACILLIN SODIUM\TAZOBACTAM SODIUM
     Dosage: UNK
     Route: 065
  11. PIPERACILLIN AND TAZOBACTAM [Suspect]
     Active Substance: PIPERACILLIN SODIUM\TAZOBACTAM SODIUM
     Dosage: 4.5 G, QID
     Route: 042
  12. PIPERACILLIN AND TAZOBACTAM [Suspect]
     Active Substance: PIPERACILLIN SODIUM\TAZOBACTAM SODIUM
     Indication: LEUKOCYTOSIS
     Dosage: UNK
     Route: 065
  13. SANDOZ AMOXI?CLAV [Suspect]
     Active Substance: AMOXICILLIN\CLAVULANIC ACID
     Dosage: 875 MG, BID
     Route: 048
  14. PANTOPRAZOLE [Concomitant]
     Active Substance: PANTOPRAZOLE
     Indication: PRODUCT USED FOR UNKNOWN INDICATION
     Dosage: UNK
     Route: 042

REACTIONS (2)
  - Clostridium difficile infection [Recovering/Resolving]
  - Fall [Unknown]
